FAERS Safety Report 26172954 (Version 1)
Quarter: 2025Q4

REPORT INFORMATION
  Report Type: Spontaneous
  Country: EU (occurrence: EU)
  Receive Date: 20251218
  Receipt Date: 20251218
  Transmission Date: 20260117
  Serious: Yes (Death, Other)
  Sender: BRISTOL-MYERS SQUIBB COMPANY
  Company Number: EU-BRISTOL-MYERS SQUIBB COMPANY-2025-167975

PATIENT
  Age: 66 Year
  Sex: Male

DRUGS (1)
  1. NIVOLUMAB [Suspect]
     Active Substance: NIVOLUMAB
     Indication: Bladder transitional cell carcinoma
     Route: 042
     Dates: start: 20250711, end: 20250923

REACTIONS (5)
  - Malignant neoplasm progression [Fatal]
  - Anaemia [Fatal]
  - C-reactive protein increased [Fatal]
  - Post procedural haemorrhage [Fatal]
  - Postoperative abscess [Fatal]

NARRATIVE: CASE EVENT DATE: 20251015
